FAERS Safety Report 7934346-7 (Version None)
Quarter: 2011Q4

REPORT INFORMATION
  Report Type: 
  Country: None (occurrence: None)
  Receive Date: 20111118
  Receipt Date: 20111104
  Transmission Date: 20120403
  Serious: Yes (Other)
  Sender: FDA-Public Use
  Company Number: 2011MA016272

PATIENT
  Age: 75 Year
  Sex: Female

DRUGS (5)
  1. ACETYLSALICYLIC AICD [Concomitant]
  2. VERAPAMIL [Concomitant]
  3. INDAPAMIDE [Suspect]
     Dates: end: 20111021
  4. ALENDRONIC ACID [Concomitant]
  5. PERINDOPRIL ERBUMINE [Concomitant]

REACTIONS (3)
  - PAIN IN EXTREMITY [None]
  - FEELING ABNORMAL [None]
  - MALAISE [None]
